FAERS Safety Report 6680701-5 (Version None)
Quarter: 2010Q2

REPORT INFORMATION
  Report Type: 
  Country: None (occurrence: None)
  Receive Date: 20100414
  Receipt Date: 20100406
  Transmission Date: 20101027
  Serious: Yes (Other)
  Sender: FDA-Public Use
  Company Number: US-BAYER-201018964NA

PATIENT
  Age: 17 Year
  Sex: Female

DRUGS (3)
  1. YAZ [Suspect]
     Indication: MENSTRUATION IRREGULAR
     Route: 048
     Dates: start: 20061030
  2. YASMIN [Suspect]
     Indication: MENSTRUATION IRREGULAR
     Route: 048
     Dates: start: 20061030
  3. OCELLA [Suspect]
     Indication: MENSTRUATION IRREGULAR
     Route: 048
     Dates: start: 20061030

REACTIONS (5)
  - ASTHENIA [None]
  - CHOLECYSTITIS [None]
  - CHOLELITHIASIS [None]
  - NAUSEA [None]
  - PAIN [None]
